FAERS Safety Report 10797744 (Version 5)
Quarter: 2015Q3

REPORT INFORMATION
  Report Type: Spontaneous
  Country: US (occurrence: US)
  Receive Date: 20150216
  Receipt Date: 20150824
  Transmission Date: 20151125
  Serious: Yes (Other)
  Sender: FDA-Public Use
  Company Number: US-PFIZER INC-2015047114

PATIENT
  Age: 69 Year
  Sex: Male
  Weight: 93 kg

DRUGS (10)
  1. AMLODIPINE [Concomitant]
     Active Substance: AMLODIPINE BESYLATE
     Dosage: UNK
  2. GLIMEPIRIDE. [Concomitant]
     Active Substance: GLIMEPIRIDE
     Dosage: UNK
  3. SUTENT [Suspect]
     Active Substance: SUNITINIB MALATE
     Dosage: 37.5 MG, DAILY
     Route: 048
     Dates: start: 201504, end: 201507
  4. MIRALAX [Concomitant]
     Active Substance: POLYETHYLENE GLYCOL 3350
     Dosage: UNK
  5. PROZAC [Concomitant]
     Active Substance: FLUOXETINE HYDROCHLORIDE
     Dosage: UNK
  6. SUTENT [Suspect]
     Active Substance: SUNITINIB MALATE
     Dosage: 37.5 MG, CYCLIC (2 WEEKS ON AND 1 WEEK OFF)
  7. ELAVIL [Concomitant]
     Active Substance: AMITRIPTYLINE HYDROCHLORIDE
     Dosage: UNK
  8. CORGARD [Concomitant]
     Active Substance: NADOLOL
     Dosage: UNK
  9. SUTENT [Suspect]
     Active Substance: SUNITINIB MALATE
     Indication: METASTATIC RENAL CELL CARCINOMA
     Dosage: 37.5 MG, CYCLIC (28 DAYS ON, 14 DAYS OFF)
     Dates: start: 20150123, end: 20150601
  10. OXYCODONE [Concomitant]
     Active Substance: OXYCODONE
     Dosage: UNK

REACTIONS (23)
  - Insomnia [Unknown]
  - Fatigue [Unknown]
  - Dysgeusia [Unknown]
  - Fall [Unknown]
  - Asthenia [Unknown]
  - Disease progression [Unknown]
  - Clavicle fracture [Unknown]
  - Faeces discoloured [Unknown]
  - Loss of consciousness [Unknown]
  - Increased appetite [Unknown]
  - Weight increased [Unknown]
  - Blood pressure increased [Unknown]
  - Metastatic renal cell carcinoma [Unknown]
  - Memory impairment [Unknown]
  - Apathy [Unknown]
  - Blood creatinine increased [Unknown]
  - Blood potassium decreased [Unknown]
  - Abdominal discomfort [Unknown]
  - Blood phosphorus decreased [Unknown]
  - Feeling abnormal [Unknown]
  - Weight decreased [Unknown]
  - Headache [Unknown]
  - Decreased appetite [Unknown]

NARRATIVE: CASE EVENT DATE: 201507
